FAERS Safety Report 5510763-X (Version None)
Quarter: 2007Q4

REPORT INFORMATION
  Report Type: 
  Country: None (occurrence: None)
  Receive Date: 20071108
  Receipt Date: 20071029
  Transmission Date: 20080405
  Serious: Yes (Hospitalization)
  Sender: FDA-Public Use
  Company Number: B0493170A

PATIENT
  Age: 5 Year
  Sex: Female
  Weight: 17 kg

DRUGS (2)
  1. LAMICTAL [Suspect]
     Dosage: 35MG TWICE PER DAY
     Route: 048
     Dates: start: 20061009, end: 20071008
  2. VALPROATE SODIUM + VALPROIC ACID [Concomitant]
     Dosage: 250MG TWICE PER DAY
     Route: 048
     Dates: start: 20060309

REACTIONS (7)
  - DERMATITIS BULLOUS [None]
  - EOSINOPHILIA [None]
  - GENITAL EROSION [None]
  - HYPERTHERMIA [None]
  - ORAL MUCOSA EROSION [None]
  - RASH MACULAR [None]
  - RHINITIS [None]
